FAERS Safety Report 14221908 (Version 2)
Quarter: 2017Q4

REPORT INFORMATION
  Report Type: Report from Study
  Country: None (occurrence: RO)
  Receive Date: 20171124
  Receipt Date: 20171213
  Transmission Date: 20180321
  Serious: Yes (Hospitalization)
  Sender: FDA-Public Use
  Company Number: RO-ABBVIE-17K-135-2173472-00

PATIENT
  Age: 45 Year
  Sex: Female

DRUGS (2)
  1. DUODOPA [Suspect]
     Active Substance: CARBIDOPA\LEVODOPA
     Indication: PARKINSON^S DISEASE
     Dosage: DM=11.00?DC=3.00?ED=1.50
     Route: 050
     Dates: start: 20160408
  2. DUODOPA [Suspect]
     Active Substance: CARBIDOPA\LEVODOPA
     Dosage: DM=8.50?DC=2.20?ED=1.10
     Route: 050

REACTIONS (5)
  - Staphylococcal infection [Recovering/Resolving]
  - Cellulitis [Recovering/Resolving]
  - Hyperchlorhydria [Recovering/Resolving]
  - Stoma site infection [Recovering/Resolving]
  - Stoma site hypergranulation [Recovering/Resolving]

NARRATIVE: CASE EVENT DATE: 20171120
